FAERS Safety Report 24975462 (Version 1)
Quarter: 2025Q1

REPORT INFORMATION
  Report Type: Report from Study
  Country: CA (occurrence: CA)
  Receive Date: 20250217
  Receipt Date: 20250217
  Transmission Date: 20250408
  Serious: Yes (Other)
  Sender: ABBVIE
  Company Number: CA-ABBVIE-6131854

PATIENT
  Sex: Female

DRUGS (2)
  1. HUMIRA [Suspect]
     Active Substance: ADALIMUMAB
     Indication: Crohn^s disease
     Route: 058
  2. METRONIDAZOLE [Concomitant]
     Active Substance: METRONIDAZOLE
     Indication: Product used for unknown indication
     Dosage: 500MG BID X 7DAYS

REACTIONS (8)
  - Intestinal anastomosis complication [Unknown]
  - Enteritis [Unknown]
  - Anal incontinence [Unknown]
  - Diarrhoea [Unknown]
  - Rash pruritic [Unknown]
  - Vaginal discharge [Unknown]
  - Nail disorder [Unknown]
  - Vulvovaginitis trichomonal [Unknown]
